FAERS Safety Report 5406188-8 (Version None)
Quarter: 2007Q3

REPORT INFORMATION
  Report Type: 
  Country: None (occurrence: None)
  Receive Date: 20070801
  Receipt Date: 20070723
  Transmission Date: 20080115
  Serious: Yes (Other)
  Sender: FDA-Public Use
  Company Number: S07-USA-03158-01

PATIENT
  Age: 26 Year
  Sex: Female

DRUGS (4)
  1. CERVIDIL [Suspect]
  2. CHITOSAN [Concomitant]
  3. ISOTRIM (SUPPLEMENT) [Concomitant]
  4. VITAPAK [Concomitant]

REACTIONS (4)
  - DRUG EXPOSURE DURING PREGNANCY [None]
  - HEART RATE INCREASED [None]
  - RUBELLA [None]
  - UNINTENDED PREGNANCY [None]
